FAERS Safety Report 8826277 (Version 2)
Quarter: 2014Q2

REPORT INFORMATION
  Report Type: Spontaneous
  Country: FR (occurrence: FR)
  Receive Date: 20121005
  Receipt Date: 20140523
  Transmission Date: 20141212
  Serious: Yes (Hospitalization)
  Sender: FDA-Public Use
  Company Number: FR-BRISTOL-MYERS SQUIBB COMPANY-17000993

PATIENT
  Age: 79 Year
  Sex: Female
  Weight: 65.3 kg

DRUGS (16)
  1. COUMADINE [Suspect]
     Indication: ATRIAL FIBRILLATION
     Route: 048
     Dates: start: 20110523, end: 20110608
  2. ACTONEL [Concomitant]
  3. AMLOR [Concomitant]
     Dosage: 1DF=10 UNITS NOS
  4. BACLOFEN [Concomitant]
  5. DRIPTANE [Concomitant]
  6. CALCIUM [Concomitant]
  7. CORDARONE [Concomitant]
  8. DAFALGAN [Concomitant]
  9. LIPANTHYL [Concomitant]
     Dosage: FORMULATION-LIPANTHYL 160.DAILY IN EVEG
  10. LOXEN [Concomitant]
     Dosage: FORMULATION-LOXEN 20
  11. TRANSIPEG [Concomitant]
  12. UVEDOSE [Concomitant]
     Dosage: 1DF=1 AMPOULE
  13. DIFFU-K [Concomitant]
  14. DUPHALAC [Concomitant]
     Dosage: FREQUENCY-(2 IN MRNG AND 1 IN EVEG)
  15. LASILIX [Concomitant]
     Dosage: FORMULATION-LASILIX 40
  16. LEVOTHYROX [Concomitant]
     Dosage: FORMULATION-LEVOTHYROX 100.?ONE IN MRNG

REACTIONS (1)
  - Hypersensitivity vasculitis [Recovered/Resolved]
